FAERS Safety Report 20760341 (Version 1)
Quarter: 2022Q2

REPORT INFORMATION
  Report Type: Spontaneous
  Country: IT (occurrence: IT)
  Receive Date: 20220428
  Receipt Date: 20220428
  Transmission Date: 20220720
  Serious: Yes (Other)
  Sender: FDA-Public Use
  Company Number: IT-MINISAL02-861363

PATIENT
  Age: 65 Year
  Sex: Female

DRUGS (1)
  1. RAMIPRIL [Suspect]
     Active Substance: RAMIPRIL
     Indication: Hypertension
     Dosage: 5 MILLIGRAM, ONCE A DAY
     Route: 048

REACTIONS (7)
  - Asthenia [Unknown]
  - Chest pain [Unknown]
  - Headache [Unknown]
  - Hypertensive crisis [Unknown]
  - Hyperhidrosis [Unknown]
  - Vertigo [Unknown]
  - Drug ineffective [Unknown]

NARRATIVE: CASE EVENT DATE: 20220312
